FAERS Safety Report 5589232-7 (Version None)
Quarter: 2008Q1

REPORT INFORMATION
  Report Type: 
  Country: None (occurrence: None)
  Receive Date: 20080109
  Receipt Date: 20080109
  Transmission Date: 20080703
  Serious: Yes (Hospitalization)
  Sender: FDA-Public Use
  Company Number: None

PATIENT
  Age: 63 Year
  Sex: Male

DRUGS (1)
  1. GENTAMICIN [Suspect]
     Indication: ENDOCARDITIS
     Dosage: 80MG  EVERY DAY  IV
     Route: 042
     Dates: start: 20070619, end: 20070703

REACTIONS (1)
  - RENAL FAILURE ACUTE [None]
